APPROVED DRUG PRODUCT: VALCYTE
Active Ingredient: VALGANCICLOVIR HYDROCHLORIDE
Strength: 50MG/ML
Dosage Form/Route: FOR SOLUTION;ORAL
Application: N022257 | Product #001 | TE Code: AB
Applicant: CHEPLAPHARM ARZNEIMITTEL GMBH
Approved: Aug 28, 2009 | RLD: Yes | RS: Yes | Type: RX

PATENTS:
Patent 9642911 | Expires: Dec 11, 2027
Patent 8889109 | Expires: Dec 11, 2027